FAERS Safety Report 4269734-6 (Version None)
Quarter: 2004Q1

REPORT INFORMATION
  Report Type: 
  Country: None (occurrence: None)
  Receive Date: 20040109
  Receipt Date: 20031231
  Transmission Date: 20041129
  Serious: Yes (Hospitalization, Other)
  Sender: FDA-Public Use
  Company Number: 2004000224

PATIENT
  Age: 85 Year
  Sex: Male
  Weight: 53.0709 kg

DRUGS (6)
  1. LIPITOR [Suspect]
     Indication: BLOOD CHOLESTEROL INCREASED
     Dosage: 20 MG, DAILY, ORAL
     Route: 048
     Dates: start: 20031001
  2. VERAPAMIL [Concomitant]
  3. ENALAPRIL MALEATE [Concomitant]
  4. ACETYLSALICYLIC ACID SRT [Concomitant]
  5. TAMSULOSIN HYDROCHLORIDE [Concomitant]
  6. DIURETICS [Concomitant]

REACTIONS (3)
  - DEHYDRATION [None]
  - MYOCARDIAL INFARCTION [None]
  - URINARY TRACT INFECTION [None]
